FAERS Safety Report 8723564 (Version 2)
Quarter: 2013Q4

REPORT INFORMATION
  Report Type: Spontaneous
  Country: JP (occurrence: JP)
  Receive Date: 20120814
  Receipt Date: 20131106
  Transmission Date: 20140711
  Serious: Yes (Hospitalization)
  Sender: FDA-Public Use
  Company Number: JP-009507513-1207JPN001507

PATIENT
  Age: 64 Year
  Sex: Male

DRUGS (3)
  1. NU-LOTAN TABLET 50 [Suspect]
     Dosage: UNK
     Route: 048
     Dates: start: 1995
  2. NU-LOTAN TABLET 50 [Suspect]
     Route: 048
     Dates: start: 1995
  3. ALLOPURINOL [Suspect]
     Route: 065
     Dates: start: 1995

REACTIONS (1)
  - Drug eruption [Recovered/Resolved]
